FAERS Safety Report 22928920 (Version 2)
Quarter: 2024Q1

REPORT INFORMATION
  Report Type: Report from Study
  Country: JP (occurrence: JP)
  Receive Date: 20230911
  Receipt Date: 20240216
  Transmission Date: 20240409
  Serious: Yes (Death, Hospitalization, Other)
  Sender: FDA-Public Use
  Company Number: JP-002147023-PHJP2017JP022553

PATIENT
  Age: 73 Year
  Sex: Female
  Weight: 37.5 kg

DRUGS (42)
  1. ILARIS [Suspect]
     Active Substance: CANAKINUMAB
     Indication: Familial mediterranean fever
     Dosage: 75 MG, UNK
     Route: 058
     Dates: start: 20170519
  2. ILARIS [Suspect]
     Active Substance: CANAKINUMAB
     Dosage: 150 MG, UNK
     Route: 058
     Dates: start: 20170616
  3. ILARIS [Suspect]
     Active Substance: CANAKINUMAB
     Dosage: 150 MG, UNK
     Route: 058
     Dates: start: 20170714
  4. ILARIS [Suspect]
     Active Substance: CANAKINUMAB
     Dosage: 150 MG, UNK
     Route: 058
     Dates: start: 20170804
  5. ILARIS [Suspect]
     Active Substance: CANAKINUMAB
     Dosage: 150 MG, UNK
     Route: 058
     Dates: start: 20170908
  6. ILARIS [Suspect]
     Active Substance: CANAKINUMAB
     Dosage: 150 MG, UNK
     Route: 058
     Dates: start: 20171006
  7. ILARIS [Suspect]
     Active Substance: CANAKINUMAB
     Dosage: 150 MG, UNK
     Route: 058
     Dates: start: 20171110
  8. ILARIS [Suspect]
     Active Substance: CANAKINUMAB
     Dosage: 150 MG, UNK
     Route: 058
     Dates: start: 20171208
  9. ILARIS [Suspect]
     Active Substance: CANAKINUMAB
     Dosage: 150 MG, UNK
     Route: 058
     Dates: start: 20180105
  10. ILARIS [Suspect]
     Active Substance: CANAKINUMAB
     Dosage: 150 MG, UNK
     Route: 058
     Dates: start: 20180216
  11. ILARIS [Suspect]
     Active Substance: CANAKINUMAB
     Dosage: 80 MG, UNK
     Route: 058
     Dates: start: 20180316
  12. ILARIS [Suspect]
     Active Substance: CANAKINUMAB
     Dosage: 80 MG, UNK
     Route: 058
     Dates: start: 20180413
  13. ILARIS [Suspect]
     Active Substance: CANAKINUMAB
     Dosage: 150 MG, UNK
     Route: 058
     Dates: start: 20180518
  14. ILARIS [Suspect]
     Active Substance: CANAKINUMAB
     Dosage: 150 MG, UNK
     Route: 058
     Dates: start: 20180615
  15. ILARIS [Suspect]
     Active Substance: CANAKINUMAB
     Dosage: 150 MG, UNK
     Route: 058
     Dates: start: 20180713
  16. ILARIS [Suspect]
     Active Substance: CANAKINUMAB
     Dosage: 150 MG, UNK
     Route: 058
     Dates: start: 20180810
  17. ILARIS [Suspect]
     Active Substance: CANAKINUMAB
     Dosage: 150 MG, UNK
     Route: 058
     Dates: start: 20180914
  18. ILARIS [Suspect]
     Active Substance: CANAKINUMAB
     Dosage: 300 MG, UNK
     Route: 058
     Dates: start: 20181023
  19. ILARIS [Suspect]
     Active Substance: CANAKINUMAB
     Dosage: 300 MG, UNK
     Route: 058
     Dates: start: 20181120
  20. ILARIS [Suspect]
     Active Substance: CANAKINUMAB
     Dosage: 158.8 MG, UNK
     Route: 058
     Dates: start: 20181221
  21. ILARIS [Suspect]
     Active Substance: CANAKINUMAB
     Dosage: 300 MG, UNK
     Route: 058
     Dates: start: 20190118
  22. ILARIS [Suspect]
     Active Substance: CANAKINUMAB
     Dosage: 300 MG, UNK
     Route: 058
     Dates: start: 20190215
  23. PREDONINE [Suspect]
     Active Substance: PREDNISOLONE
     Indication: Familial mediterranean fever
     Dosage: ADJUSTED BETWEEN 12.5-40 MG, UNK
     Route: 048
  24. COLCHICINE [Concomitant]
     Active Substance: COLCHICINE
     Indication: Familial mediterranean fever
     Dosage: 0.5 MG, UNK
     Route: 048
     Dates: start: 20160716, end: 20160722
  25. COLCHICINE [Concomitant]
     Active Substance: COLCHICINE
     Dosage: 1 MG, UNK
     Route: 048
     Dates: start: 20160722, end: 20160902
  26. COLCHICINE [Concomitant]
     Active Substance: COLCHICINE
     Dosage: 0.5 MG, UNK
     Route: 048
     Dates: start: 20160902, end: 20161118
  27. COLCHICINE [Concomitant]
     Active Substance: COLCHICINE
     Dosage: 1.5 MG, UNK
     Route: 048
     Dates: start: 20161118, end: 20161209
  28. COLCHICINE [Concomitant]
     Active Substance: COLCHICINE
     Dosage: 2.5 MG, UNK
     Route: 048
     Dates: start: 20161209, end: 20170217
  29. COLCHICINE [Concomitant]
     Active Substance: COLCHICINE
     Dosage: 1.5 MG, UNK
     Route: 048
     Dates: start: 20170217, end: 20170303
  30. COLCHICINE [Concomitant]
     Active Substance: COLCHICINE
     Dosage: 0.5 MG, UNK
     Route: 048
     Dates: start: 20180630, end: 20180713
  31. COLCHICINE [Concomitant]
     Active Substance: COLCHICINE
     Dosage: 1.0 MG, UNK
     Route: 048
     Dates: start: 20180714, end: 20180810
  32. COLCHICINE [Concomitant]
     Active Substance: COLCHICINE
     Dosage: 1.5 MG, UNK
     Route: 048
     Dates: start: 20180811, end: 20181102
  33. COLCHICINE [Concomitant]
     Active Substance: COLCHICINE
     Dosage: 2.0 MG, UNK
     Route: 048
     Dates: start: 20181103, end: 20181210
  34. COLCHICINE [Concomitant]
     Active Substance: COLCHICINE
     Dosage: 1 MG, UNK
     Route: 048
     Dates: start: 20181211, end: 20190505
  35. COLCHICINE [Concomitant]
     Active Substance: COLCHICINE
     Dosage: 0.5 MG, UNK
     Route: 048
     Dates: start: 20190506
  36. LOXOPROFEN SODIUM [Concomitant]
     Active Substance: LOXOPROFEN SODIUM
     Indication: Familial mediterranean fever
     Dosage: UNK
     Route: 048
  37. REBAMIPIDE [Concomitant]
     Active Substance: REBAMIPIDE
     Indication: Familial mediterranean fever
     Dosage: UNK
     Route: 048
  38. LANSOPRAZOLE [Concomitant]
     Active Substance: LANSOPRAZOLE
     Indication: Familial mediterranean fever
     Dosage: UNK
     Route: 048
  39. DIMETHICONE [Concomitant]
     Active Substance: DIMETHICONE
     Indication: Product used for unknown indication
     Dosage: UNK
     Route: 048
  40. DIMETHICONE [Concomitant]
     Active Substance: DIMETHICONE
     Dosage: UNK
     Route: 048
  41. LYRICA [Concomitant]
     Active Substance: PREGABALIN
     Indication: Product used for unknown indication
     Dosage: UNK
     Route: 048
  42. SULFAMETHOXAZOLE\TRIMETHOPRIM [Concomitant]
     Active Substance: SULFAMETHOXAZOLE\TRIMETHOPRIM
     Indication: Prophylaxis
     Dosage: UNK
     Route: 048

REACTIONS (17)
  - Peritoneal mesothelioma malignant [Fatal]
  - Ascites [Fatal]
  - Familial mediterranean fever [Recovering/Resolving]
  - C-reactive protein increased [Unknown]
  - Serum amyloid A protein increased [Unknown]
  - Abdominal pain [Unknown]
  - Disease progression [Recovering/Resolving]
  - Pollakiuria [Recovering/Resolving]
  - Haematuria [Recovering/Resolving]
  - Urinary tract infection [Recovering/Resolving]
  - White blood cell count increased [Unknown]
  - Rash [Recovered/Resolved]
  - Urticaria [Recovering/Resolving]
  - Pruritus [Unknown]
  - Glucose tolerance impaired [Not Recovered/Not Resolved]
  - Nasopharyngitis [Recovering/Resolving]
  - Drug ineffective [Unknown]

NARRATIVE: CASE EVENT DATE: 20170602
